FAERS Safety Report 5694402-3 (Version None)
Quarter: 2008Q2

REPORT INFORMATION
  Report Type: 
  Country: None (occurrence: None)
  Receive Date: 20080402
  Receipt Date: 20080319
  Transmission Date: 20081010
  Serious: Yes (Hospitalization)
  Sender: FDA-Public Use
  Company Number: 14121362

PATIENT
  Age: 24 Year
  Sex: Male

DRUGS (4)
  1. REVIA [Suspect]
     Dosage: 50 MILLIGRAM 1 DAY
     Dates: start: 20080211
  2. SUBUTEX [Suspect]
     Dosage: 8 MILLIGRAM 1 DAY
  3. PRAZEPAM [Concomitant]
  4. SEROPLEX (ESCITALOPRAM OXALATE) [Concomitant]

REACTIONS (7)
  - ABDOMINAL PAIN [None]
  - CHILLS [None]
  - DRUG WITHDRAWAL SYNDROME [None]
  - HYPERHIDROSIS [None]
  - MYALGIA [None]
  - SOMNOLENCE [None]
  - YAWNING [None]
